FAERS Safety Report 10678867 (Version 1)
Quarter: 2014Q4

REPORT INFORMATION
  Report Type: Spontaneous
  Country: US (occurrence: US)
  Receive Date: 20141229
  Receipt Date: 20141229
  Transmission Date: 20150529
  Serious: No
  Sender: FDA-Public Use
  Company Number: US-PFIZER INC-2014356050

PATIENT
  Age: 56 Year
  Sex: Male
  Weight: 77 kg

DRUGS (12)
  1. LYRICA [Suspect]
     Active Substance: PREGABALIN
     Dosage: 75 MG, 1X/DAY (AT BEDTIME)
     Route: 048
     Dates: start: 201411
  2. TRAMADOL [Concomitant]
     Active Substance: TRAMADOL
     Indication: PAIN
     Dosage: 50 MG, AS NEEDED
  3. LYRICA [Suspect]
     Active Substance: PREGABALIN
     Dosage: 75 MG, 1 CAPSULE IN AM AND 2 CAPSULES AT NIGHT
     Route: 048
  4. VITAMIN D [Concomitant]
     Active Substance: CHOLECALCIFEROL
  5. BIOTENE [Concomitant]
     Active Substance: SODIUM MONOFLUOROPHOSPHATE
  6. METAXALONE. [Concomitant]
     Active Substance: METAXALONE
     Indication: PAIN
     Dosage: 800 MG, AS NEEDED
  7. PROBIOTICS [Concomitant]
     Active Substance: PROBIOTICS NOS
  8. MELATONIN [Concomitant]
     Active Substance: MELATONIN
  9. ACETAMINOPHEN. [Concomitant]
     Active Substance: ACETAMINOPHEN
     Dosage: UNK, AS NEEDED
  10. AVODART [Concomitant]
     Active Substance: DUTASTERIDE
     Indication: HAIR GROWTH ABNORMAL
     Dosage: 5 MG, DAILY
  11. LYRICA [Suspect]
     Active Substance: PREGABALIN
     Dosage: 75 MG, 2X/DAY
     Route: 048
  12. VITAMIN C [Concomitant]
     Active Substance: ASCORBIC ACID

REACTIONS (1)
  - Dry mouth [Not Recovered/Not Resolved]

NARRATIVE: CASE EVENT DATE: 2014
